FAERS Safety Report 22762528 (Version 4)
Quarter: 2025Q1

REPORT INFORMATION
  Report Type: Spontaneous
  Country: DE (occurrence: DE)
  Receive Date: 20230728
  Receipt Date: 20250107
  Transmission Date: 20250408
  Serious: Yes (Hospitalization, Other)
  Sender: PFIZER
  Company Number: DE-002147023-NVSC2023DE108960

PATIENT
  Age: 51 Year
  Sex: Female
  Weight: 83 kg

DRUGS (5)
  1. EXEMESTANE [Suspect]
     Active Substance: EXEMESTANE
     Indication: Hormone receptor positive HER2 negative breast cancer
     Dosage: 25 MG, QD
     Route: 048
     Dates: start: 20230114
  2. LETROZOLE [Suspect]
     Active Substance: LETROZOLE
     Indication: Hormone receptor positive HER2 negative breast cancer
     Dosage: 2.5 MG, QD
     Route: 048
     Dates: start: 20211207
  3. KISQALI [Suspect]
     Active Substance: RIBOCICLIB
     Indication: Hormone receptor positive HER2 negative breast cancer
     Dosage: 600 MG, 1X/DAY
     Dates: start: 20211207
  4. LEVOTHYROXINE SODIUM [Suspect]
     Active Substance: LEVOTHYROXINE SODIUM
  5. ALBUTEROL SULFATE [Suspect]
     Active Substance: ALBUTEROL SULFATE

REACTIONS (4)
  - Osteoarthritis [Unknown]
  - Antinuclear antibody increased [Not Recovered/Not Resolved]
  - Bone pain [Not Recovered/Not Resolved]
  - Leukopenia [Not Recovered/Not Resolved]

NARRATIVE: CASE EVENT DATE: 20230504
